FAERS Safety Report 17000273 (Version 2)
Quarter: 2020Q1

REPORT INFORMATION
  Report Type: Spontaneous
  Country: JP (occurrence: JP)
  Receive Date: 20191106
  Receipt Date: 20200107
  Transmission Date: 20200409
  Serious: No
  Sender: FDA-Public Use
  Company Number: JP-BEH-2019108936

PATIENT
  Sex: Male

DRUGS (1)
  1. ALBUMINAR [Suspect]
     Active Substance: ALBUMIN HUMAN
     Indication: HYPOALBUMINAEMIA
     Dosage: 1 VIAL, QD
     Route: 042
     Dates: start: 20191030, end: 20191101

REACTIONS (1)
  - Extravasation [Recovered/Resolved]

NARRATIVE: CASE EVENT DATE: 20191030
